FAERS Safety Report 23965490 (Version 2)
Quarter: 2024Q3

REPORT INFORMATION
  Report Type: Spontaneous
  Country: BR (occurrence: BR)
  Receive Date: 20240612
  Receipt Date: 20240703
  Transmission Date: 20241017
  Serious: No
  Sender: AMGEN
  Company Number: BR-AMGEN-BRASP2024112888

PATIENT
  Sex: Female

DRUGS (6)
  1. TEPEZZA [Suspect]
     Active Substance: TEPROTUMUMAB-TRBW
     Indication: Endocrine ophthalmopathy
     Dosage: UNK, FIRST INFUSION
     Route: 042
     Dates: start: 20240131
  2. TEPEZZA [Suspect]
     Active Substance: TEPROTUMUMAB-TRBW
     Dosage: UNK, SECOND INFUSION
     Route: 042
     Dates: start: 2024
  3. TEPEZZA [Suspect]
     Active Substance: TEPROTUMUMAB-TRBW
     Dosage: UNK, THIRD INFUSION
     Route: 042
     Dates: start: 2024
  4. TEPEZZA [Suspect]
     Active Substance: TEPROTUMUMAB-TRBW
     Dosage: UNK (FOURTH INFUSION)
     Route: 042
     Dates: start: 2024
  5. TEPEZZA [Suspect]
     Active Substance: TEPROTUMUMAB-TRBW
     Dosage: UNK (FIFTH INFUSION)
     Route: 042
     Dates: start: 2024
  6. TEPEZZA [Suspect]
     Active Substance: TEPROTUMUMAB-TRBW
     Dosage: UNK (SIXTH FUSION)
     Route: 042
     Dates: start: 2024

REACTIONS (3)
  - Blood glucose abnormal [Recovered/Resolved]
  - Alopecia [Not Recovered/Not Resolved]
  - Fatigue [Unknown]

NARRATIVE: CASE EVENT DATE: 20240101
